FAERS Safety Report 16806251 (Version 1)
Quarter: 2019Q3

REPORT INFORMATION
  Report Type: Spontaneous
  Country: CN (occurrence: CN)
  Receive Date: 20190913
  Receipt Date: 20190913
  Transmission Date: 20191005
  Serious: Yes (Life-Threatening, Hospitalization)
  Sender: FDA-Public Use
  Company Number: CN-FRESENIUS KABI-FK201909880

PATIENT
  Age: 29 Year
  Sex: Female
  Weight: 60 kg

DRUGS (1)
  1. VOLUVEN [Suspect]
     Active Substance: HYDROXYETHYL STARCH 130/0.4
     Indication: BLOOD VOLUME EXPANSION
     Dosage: 500 ML/DAY
     Route: 042
     Dates: start: 20190902, end: 20190902

REACTIONS (2)
  - Tachypnoea [Recovering/Resolving]
  - Temperature intolerance [Recovering/Resolving]

NARRATIVE: CASE EVENT DATE: 20190902
